FAERS Safety Report 11354729 (Version 1)
Quarter: 2015Q3

REPORT INFORMATION
  Report Type: Spontaneous
  Country: US (occurrence: US)
  Receive Date: 20150807
  Receipt Date: 20150807
  Transmission Date: 20151125
  Serious: No
  Sender: FDA-Public Use
  Company Number: US-JNJFOC-20141113107

PATIENT
  Sex: Female
  Weight: 63.5 kg

DRUGS (2)
  1. MENS ROGAINE [Suspect]
     Active Substance: MINOXIDIL
     Route: 061
  2. MENS ROGAINE [Suspect]
     Active Substance: MINOXIDIL
     Indication: HAIR GROWTH ABNORMAL
     Dosage: AS DIRECTED
     Route: 061

REACTIONS (3)
  - Application site irritation [Recovered/Resolved]
  - Wrong patient received medication [Unknown]
  - Erythema [Recovered/Resolved]
